FAERS Safety Report 24275256 (Version 1)
Quarter: 2024Q3

REPORT INFORMATION
  Report Type: Spontaneous
  Country: ZA (occurrence: ZA)
  Receive Date: 20240903
  Receipt Date: 20240903
  Transmission Date: 20241016
  Serious: Yes (Life-Threatening, Other)
  Sender: NOVO NORDISK
  Company Number: ZA-NOVOPROD-1274231

PATIENT
  Sex: Female

DRUGS (1)
  1. OZEMPIC [Suspect]
     Active Substance: SEMAGLUTIDE
     Indication: Product used for unknown indication
     Dosage: 1 MG
     Dates: start: 202301, end: 202401

REACTIONS (7)
  - Epilepsy [Unknown]
  - Pituitary tumour benign [Unknown]
  - Autoimmune thyroiditis [Unknown]
  - Aneurysm [Unknown]
  - Cerebrovascular accident [Unknown]
  - Ankle fracture [Unknown]
  - Product use in unapproved indication [Unknown]
